FAERS Safety Report 16655275 (Version 1)
Quarter: 2019Q3

REPORT INFORMATION
  Report Type: Spontaneous
  Country: GB (occurrence: GB)
  Receive Date: 20190801
  Receipt Date: 20190801
  Transmission Date: 20191004
  Serious: Yes (Hospitalization)
  Sender: FDA-Public Use
  Company Number: GB-CONCORDIA PHARMACEUTICALS INC.-E2B_00020498

PATIENT
  Age: 64 Year
  Sex: Female

DRUGS (14)
  1. DOCUSATE SODIUM. [Concomitant]
     Active Substance: DOCUSATE SODIUM
  2. FERROUS FUMARATE [Concomitant]
     Active Substance: FERROUS FUMARATE
  3. DIGOXIN. [Suspect]
     Active Substance: DIGOXIN
     Indication: ATRIAL FIBRILLATION
     Dosage: IN THE MORNING.
     Route: 048
     Dates: start: 20170801, end: 20190412
  4. APIXABAN [Concomitant]
     Active Substance: APIXABAN
  5. HUMULIN L [Concomitant]
     Active Substance: INSULIN HUMAN
  6. SPIRONOLACTONE. [Concomitant]
     Active Substance: SPIRONOLACTONE
  7. MOVICOL [Concomitant]
     Active Substance: POLYETHYLENE GLYCOL 3350\POTASSIUM CHLORIDE\SODIUM BICARBONATE\SODIUM CHLORIDE
  8. QV CREAM [Concomitant]
  9. RAMIPRIL. [Concomitant]
     Active Substance: RAMIPRIL
  10. GLICLAZIDE [Concomitant]
     Active Substance: GLICLAZIDE
  11. DIGIFAB [Concomitant]
     Active Substance: OVINE DIGOXIN IMMUNE FAB
  12. ATORVASTATIN [Concomitant]
     Active Substance: ATORVASTATIN
  13. PREGABALIN. [Concomitant]
     Active Substance: PREGABALIN
  14. BUMETANIDE. [Concomitant]
     Active Substance: BUMETANIDE

REACTIONS (5)
  - Hyperkalaemia [Unknown]
  - Acute kidney injury [Unknown]
  - Dehydration [Unknown]
  - Liver function test abnormal [Unknown]
  - Toxicity to various agents [Recovered/Resolved]

NARRATIVE: CASE EVENT DATE: 20190412
